FAERS Safety Report 20369357 (Version 3)
Quarter: 2022Q4

REPORT INFORMATION
  Report Type: Report from Study
  Country: US (occurrence: US)
  Receive Date: 20220124
  Receipt Date: 20221119
  Transmission Date: 20230112
  Serious: Yes (Hospitalization, Other)
  Sender: FDA-Public Use
  Company Number: US-NOVARTISPH-NVSC2022US013411

PATIENT
  Sex: Female

DRUGS (1)
  1. GLEEVEC [Suspect]
     Active Substance: IMATINIB MESYLATE
     Indication: Product used for unknown indication
     Dosage: 400 MG
     Route: 048

REACTIONS (6)
  - Pelvic fracture [Unknown]
  - Fractured coccyx [Unknown]
  - Rib fracture [Unknown]
  - Breast cancer [Recovered/Resolved]
  - Fall [Unknown]
  - Fracture [Unknown]
